FAERS Safety Report 22067308 (Version 2)
Quarter: 2023Q1

REPORT INFORMATION
  Report Type: Spontaneous
  Country: US (occurrence: US)
  Receive Date: 20230307
  Receipt Date: 20230314
  Transmission Date: 20230418
  Serious: No
  Sender: FDA-Public Use
  Company Number: US-UNITED THERAPEUTICS-UNT-2023-005618

PATIENT
  Age: 57 Year
  Sex: Female

DRUGS (2)
  1. TYVASO [Suspect]
     Active Substance: TREPROSTINIL
     Indication: Interstitial lung disease
     Dosage: 18 ?G, QID
     Dates: start: 202302, end: 20230301
  2. TYVASO [Suspect]
     Active Substance: TREPROSTINIL
     Dosage: UNK
     Dates: start: 20230219

REACTIONS (10)
  - Dizziness postural [Recovered/Resolved]
  - Anxiety [Unknown]
  - Chest discomfort [Unknown]
  - Dyspnoea [Recovered/Resolved]
  - Heart rate increased [Recovered/Resolved]
  - Oxygen saturation decreased [Recovered/Resolved]
  - General physical health deterioration [Not Recovered/Not Resolved]
  - Gait disturbance [Recovered/Resolved]
  - Interstitial lung disease [Unknown]
  - Off label use [Unknown]

NARRATIVE: CASE EVENT DATE: 20230201
